FAERS Safety Report 5097863-6 (Version None)
Quarter: 2006Q3

REPORT INFORMATION
  Report Type: 
  Country: None (occurrence: None)
  Receive Date: 20060905
  Receipt Date: 20060905
  Transmission Date: 20061208
  Serious: Yes (Hospitalization)
  Sender: FDA-Public Use
  Company Number: None

PATIENT
  Age: 66 Year
  Sex: Male
  Weight: 73.0291 kg

DRUGS (10)
  1. GEMCITABINE 1 GM [Suspect]
     Dosage: 2000 MG
     Dates: start: 20060822, end: 20060901
  2. CISPLATIN 200 MG/200 ML [Suspect]
     Dosage: 170 MG
     Dates: start: 20060822, end: 20060901
  3. ALBUTEROL [Concomitant]
  4. ALPRAZOLAM [Concomitant]
  5. DEXAMETHASONE TAB [Concomitant]
  6. DIPHEN ELIX [Concomitant]
  7. DOCUSATE NA [Concomitant]
  8. ERLOTINIB [Concomitant]
  9. FLUNISOLIDE [Concomitant]
  10. OXYCODONE HCL [Concomitant]

REACTIONS (8)
  - DIARRHOEA [None]
  - FAECES DISCOLOURED [None]
  - HAEMATURIA [None]
  - NAUSEA [None]
  - PALLOR [None]
  - RETCHING [None]
  - TREMOR [None]
  - VOMITING [None]
